FAERS Safety Report 10493791 (Version 2)
Quarter: 2014Q4

REPORT INFORMATION
  Report Type: Report from Study
  Country: BR (occurrence: BR)
  Receive Date: 20141002
  Receipt Date: 20141016
  Transmission Date: 20150528
  Serious: Yes (Other)
  Sender: FDA-Public Use
  Company Number: PHHY2014BR127993

PATIENT
  Sex: Female
  Weight: 88 kg

DRUGS (6)
  1. PAROXETINE [Suspect]
     Active Substance: PAROXETINE\PAROXETINE HYDROCHLORIDE
     Indication: EPILEPSY
     Dosage: 20 MG, BID
     Route: 048
  2. TRILEPTAL [Suspect]
     Active Substance: OXCARBAZEPINE
     Indication: SEIZURE
  3. OMEPRAZOLE. [Suspect]
     Active Substance: OMEPRAZOLE
     Indication: PROPHYLAXIS
     Dosage: 4 DF (4 TABLETS), BID
     Route: 048
  4. PAROXETINE [Suspect]
     Active Substance: PAROXETINE\PAROXETINE HYDROCHLORIDE
     Indication: OFF LABEL USE
  5. TRILEPTAL [Suspect]
     Active Substance: OXCARBAZEPINE
     Indication: EPILEPSY
     Dosage: 3 DF (3 TABLETS), DAILY
     Route: 048
  6. FRISIUM [Suspect]
     Active Substance: CLOBAZAM
     Indication: EPILEPSY
     Dosage: 2 DF, PER DAY
     Route: 048
     Dates: start: 1996

REACTIONS (11)
  - Memory impairment [Recovering/Resolving]
  - Abnormal behaviour [Recovering/Resolving]
  - Petit mal epilepsy [Recovering/Resolving]
  - Syncope [Recovering/Resolving]
  - Anxiety [Recovering/Resolving]
  - Burning sensation [Recovering/Resolving]
  - Maternal exposure during pregnancy [Unknown]
  - Insomnia [Recovering/Resolving]
  - Tachycardia [Recovering/Resolving]
  - Influenza [Recovering/Resolving]
  - Mental disorder [Recovering/Resolving]
